FAERS Safety Report 4742130-0 (Version None)
Quarter: 2005Q3

REPORT INFORMATION
  Report Type: 
  Country: None (occurrence: None)
  Receive Date: 20050808
  Receipt Date: 20050802
  Transmission Date: 20060218
  Serious: Yes (Other)
  Sender: FDA-Public Use
  Company Number: 200512452BCC

PATIENT
  Age: 71 Year
  Sex: Female
  Weight: 58.9676 kg

DRUGS (6)
  1. REGIMEN BAYER ASPIRIN (ACETYSALICYCLIC ACID) [Suspect]
     Indication: PAIN
     Dosage: SEE IMAGE
     Dates: start: 20040201
  2. REGIMEN BAYER ASPIRIN (ACETYSALICYCLIC ACID) [Suspect]
     Indication: SLEEP DISORDER
     Dosage: SEE IMAGE
     Dates: start: 20040201
  3. ACETYLSALICYLIC ACID SRT [Suspect]
     Indication: PAIN
  4. FOSAMAX [Concomitant]
  5. CALCIUM GLUCONATE [Concomitant]
  6. MULTIVITAMIN [Concomitant]

REACTIONS (2)
  - CONVULSION [None]
  - TONGUE BITING [None]
